FAERS Safety Report 6077978-6 (Version None)
Quarter: 2009Q1

REPORT INFORMATION
  Report Type: 
  Country: None (occurrence: None)
  Receive Date: 20090210
  Receipt Date: 20090203
  Transmission Date: 20090719
  Serious: Yes (Death, Hospitalization)
  Sender: FDA-Public Use
  Company Number: BAYER CASE ID: 200910322BYL

PATIENT
  Age: 89 Year
  Sex: Female

DRUGS (10)
  1. FLUDARA [Suspect]
     Indication: FOLLICLE CENTRE LYMPHOMA, FOLLICULAR GRADE I, II, III
     Dosage: 40 MG ORAL, 50 MG ORAL, 40 MG ORAL
     Route: 048
     Dates: start: 20080409, end: 20080413
  2. FLUDARA [Suspect]
     Indication: FOLLICLE CENTRE LYMPHOMA, FOLLICULAR GRADE I, II, III STAGE II
     Dosage: 40 MG ORAL, 50 MG ORAL, 40 MG ORAL
     Route: 048
     Dates: start: 20080409, end: 20080413
  3. FLUDARA [Suspect]
     Indication: FOLLICLE CENTRE LYMPHOMA, FOLLICULAR GRADE I, II, III
     Dosage: 40 MG ORAL, 50 MG ORAL, 40 MG ORAL
     Route: 048
     Dates: start: 20080501, end: 20080505
  4. FLUDARA [Suspect]
     Indication: FOLLICLE CENTRE LYMPHOMA, FOLLICULAR GRADE I, II, III STAGE II
     Dosage: 40 MG ORAL, 50 MG ORAL, 40 MG ORAL
     Route: 048
     Dates: start: 20080501, end: 20080505
  5. FLUDARA [Suspect]
     Indication: FOLLICLE CENTRE LYMPHOMA, FOLLICULAR GRADE I, II, III
     Dosage: 40 MG ORAL, 50 MG ORAL, 40 MG ORAL
     Route: 048
     Dates: start: 20080501
  6. FLUDARA [Suspect]
     Indication: FOLLICLE CENTRE LYMPHOMA, FOLLICULAR GRADE I, II, III STAGE II
     Dosage: 40 MG ORAL, 50 MG ORAL, 40 MG ORAL
     Route: 048
     Dates: start: 20080501
  7. PREDONINE (PREDNISOLONE [PREDNISOLONE]) [Concomitant]
  8. NORVASC (AMLODIPOINE) [Concomitant]
  9. ALLOPURINOL [Concomitant]
  10. FAMOTIDINE [Concomitant]

REACTIONS (1)
  - PNEUMOCYSTIS JIROVECI PNEUMONIA [None]
